FAERS Safety Report 8401265-1 (Version None)
Quarter: 2012Q2

REPORT INFORMATION
  Report Type: 
  Country: None (occurrence: None)
  Receive Date: 20120601
  Receipt Date: 20120521
  Transmission Date: 20120825
  Serious: Yes (Other)
  Sender: FDA-Public Use
  Company Number: BR-ACCORD-013619

PATIENT
  Age: 13 Year
  Sex: Female

DRUGS (8)
  1. VINCRISTINE [Suspect]
     Dosage: AFTER 80 WKS, 1.5 MG/M2 PULSES EVERY SIX WKS.
  2. TENIPOSIDE [Suspect]
     Dosage: FOR 3 WEEKS.
  3. METHOTREXATE [Suspect]
     Dosage: 2 G/M2/WK FOR 3 WKS, 40 MG/M2/WK FOR 6 WKS AND AFTER 80 WKS 40 MG/M2/WK EVERY 6 WKS UNTIL 120 WKS.
  4. CYTARABINE [Suspect]
     Dosage: 250 MG/M2/DOSE/WK FOR 3 WKS AND 15 G/M2/DAY FOR TWO CONSECUTIVE DAYS FOR 6 WKS.
  5. ETOPOSIDE [Suspect]
     Dosage: FOR THREE CONSECUTIVE DAYS.
  6. MERCAPTOPURINE [Suspect]
     Dosage: 75 MG/M2/DAY FOR 3 WKS AND UNKNOWN DOSE FOR 6 WKS. AFTER 80 WKS, DAILY EVERY SIX WKS.
  7. CYCLOPHOSPHAMIDE [Suspect]
     Dosage: FOR FOUR CONSECUTIVE DAYS.
  8. DEXAMETHASONE [Suspect]
     Dosage: FOR SEVEN DAYS UNTIL THE 120TH WEEK.

REACTIONS (2)
  - OFF LABEL USE [None]
  - MUSCULAR WEAKNESS [None]
